FAERS Safety Report 11157063 (Version 1)
Quarter: 2015Q2

REPORT INFORMATION
  Report Type: Spontaneous
  Country: US (occurrence: US)
  Receive Date: 20150602
  Receipt Date: 20150602
  Transmission Date: 20150821
  Serious: No
  Sender: FDA-Public Use
  Company Number: US-TEVA-565131USA

PATIENT
  Sex: Male

DRUGS (1)
  1. COPAXONE [Suspect]
     Active Substance: GLATIRAMER ACETATE
     Indication: MULTIPLE SCLEROSIS
     Dosage: INJECTION FORM STRENGTH

REACTIONS (4)
  - Injection site mass [Unknown]
  - Dizziness [Unknown]
  - Blood pressure increased [Unknown]
  - Injection site haemorrhage [Unknown]
